FAERS Safety Report 21166971 (Version 2)
Quarter: 2023Q1

REPORT INFORMATION
  Report Type: Spontaneous
  Country: US (occurrence: US)
  Receive Date: 20220803
  Receipt Date: 20230130
  Transmission Date: 20230418
  Serious: No
  Sender: FDA-Public Use
  Company Number: US-SAREPTA THERAPEUTICS INC.-SRP2022-002182

PATIENT
  Age: 15 Year
  Sex: Male
  Weight: 63.5 kg

DRUGS (2)
  1. AMONDYS 45 [Suspect]
     Active Substance: CASIMERSEN
     Indication: Duchenne muscular dystrophy
     Dosage: 1900 MILLIGRAM, WEEKLY
     Route: 042
     Dates: start: 20220225, end: 20220403
  2. AMONDYS 45 [Suspect]
     Active Substance: CASIMERSEN
     Dosage: 1900 MILLIGRAM, WEEKLY
     Route: 042
     Dates: start: 20220415

REACTIONS (2)
  - Poor venous access [Not Recovered/Not Resolved]
  - Device issue [Unknown]

NARRATIVE: CASE EVENT DATE: 20220409
